FAERS Safety Report 4700978-2 (Version None)
Quarter: 2005Q2

REPORT INFORMATION
  Report Type: 
  Country: None (occurrence: None)
  Receive Date: 20050624
  Receipt Date: 20050609
  Transmission Date: 20051028
  Serious: Yes (Other)
  Sender: FDA-Public Use
  Company Number: US076416

PATIENT
  Age: 50 Year
  Sex: Male

DRUGS (7)
  1. PROCRIT [Suspect]
     Indication: PRE-EXISTING DISEASE
     Dosage: 40000 IU, 1 IN 1 WEEKS, SC
     Route: 058
     Dates: start: 20031010, end: 20040423
  2. RIBAVIRIN [Concomitant]
  3. PEGULATED INTERFERON ALFA-2B [Concomitant]
  4. NIFEDIPINE [Concomitant]
  5. HYDROCHLOROTHIAZIDE [Concomitant]
  6. CALCIUM CITRATE [Concomitant]
  7. CITALOPRAM [Concomitant]

REACTIONS (12)
  - ANTI-ERYTHROPOIETIN ANTIBODY POSITIVE [None]
  - ANTIBODY TEST POSITIVE [None]
  - APLASIA PURE RED CELL [None]
  - DEPRESSION [None]
  - DISEASE RECURRENCE [None]
  - HEPATITIS C [None]
  - INJECTION SITE SWELLING [None]
  - NEUTRALISING ANTIBODIES [None]
  - PARVOVIRUS B19 SEROLOGY POSITIVE [None]
  - PLATELET COUNT DECREASED [None]
  - THERAPEUTIC RESPONSE DECREASED [None]
  - WHITE BLOOD CELL COUNT DECREASED [None]
